FAERS Safety Report 7517363-0 (Version None)
Quarter: 2011Q2

REPORT INFORMATION
  Report Type: 
  Country: None (occurrence: None)
  Receive Date: 20110601
  Receipt Date: 20100211
  Transmission Date: 20111010
  Serious: No
  Sender: FDA-Public Use
  Company Number: US-BAYER-201013815NA

PATIENT
  Sex: Male

DRUGS (6)
  1. NASONEX [Concomitant]
  2. AVELOX [Suspect]
     Indication: INFECTION PROPHYLAXIS
     Dosage: UNK
     Dates: start: 20100205, end: 20100210
  3. IBUPROFEN [Concomitant]
  4. PREDNISONE [Concomitant]
     Indication: LYMPHADENOPATHY
     Dosage: UNK
     Dates: start: 20100205, end: 20100210
  5. PREDNISONE [Concomitant]
     Indication: EAR DISORDER
  6. MIDRIN [Concomitant]

REACTIONS (8)
  - DIZZINESS [None]
  - MUSCULOSKELETAL DISCOMFORT [None]
  - NAUSEA [None]
  - HEADACHE [None]
  - CONFUSIONAL STATE [None]
  - BACK DISORDER [None]
  - ARTHRALGIA [None]
  - DIARRHOEA [None]
